FAERS Safety Report 8042755-3 (Version None)
Quarter: 2012Q1

REPORT INFORMATION
  Report Type: 
  Country: None (occurrence: None)
  Receive Date: 20120112
  Receipt Date: 20120105
  Transmission Date: 20120608
  Serious: Yes (Hospitalization)
  Sender: FDA-Public Use
  Company Number: US-BAYER-2011-075343

PATIENT
  Age: 37 Year
  Sex: Female
  Weight: 87.6 kg

DRUGS (12)
  1. YAZ [Suspect]
     Indication: ORAL CONTRACEPTION
     Dosage: UNK
     Route: 048
     Dates: start: 20090201, end: 20090401
  2. DILAUDID [Concomitant]
     Dosage: 2 MG, Q4HR
     Route: 048
  3. MIRALAX [Concomitant]
  4. BACTRIM DS [Concomitant]
     Dosage: 1 TABLET
     Route: 048
  5. NAPROXEN (ALEVE) [Concomitant]
     Dosage: 220 MG, BID
     Route: 048
  6. MAX LEAN [Concomitant]
     Dosage: UNK UNK, PRN
  7. FLAGYL [Concomitant]
     Dosage: 500 MG, TID
     Route: 048
  8. MAGNESIUM CITRATE [Concomitant]
     Indication: CONSTIPATION
     Dosage: ONE CAPFUL
  9. KLONOPIN [Concomitant]
     Dosage: 1 MG, BID
     Route: 048
  10. FEMME LEAN [Concomitant]
  11. PHENERGAN [Concomitant]
     Dosage: 25 MG, Q4HR
     Route: 048
  12. ZANTAC [Concomitant]
     Dosage: 75 MG, BID
     Route: 048

REACTIONS (2)
  - INJURY [None]
  - PULMONARY EMBOLISM [None]
